FAERS Safety Report 7296427-3 (Version None)
Quarter: 2011Q1

REPORT INFORMATION
  Report Type: 
  Country: None (occurrence: None)
  Receive Date: 20110216
  Receipt Date: 20110204
  Transmission Date: 20110831
  Serious: Yes (Death, Hospitalization, Other)
  Sender: FDA-Public Use
  Company Number: JP-BAYER-2010-001224

PATIENT
  Sex: Male
  Weight: 66 kg

DRUGS (13)
  1. AMLODIPINE [Concomitant]
     Indication: HYPERTENSION
     Dosage: DAILY DOSE 5 MG
     Route: 048
  2. URSO 250 [Concomitant]
     Indication: HEPATIC CIRRHOSIS
     Dosage: DAILY DOSE 600 MG
     Route: 048
  3. ALDACTONE [Concomitant]
     Indication: OEDEMA PERIPHERAL
     Dosage: DAILY DOSE 25 MG
     Route: 048
  4. LASIX [Concomitant]
     Indication: ASCITES
     Dosage: DAILY DOSE 10 MG
     Route: 048
     Dates: start: 20101126, end: 20101210
  5. NEXAVAR [Suspect]
     Indication: HEPATIC NEOPLASM MALIGNANT
     Dosage: 200 MG, BID
     Route: 048
     Dates: start: 20101116, end: 20101123
  6. ALDACTONE [Concomitant]
     Indication: ASCITES
     Dosage: DAILY DOSE 12.5 MG
     Route: 048
     Dates: start: 20101126, end: 20101210
  7. UREPEARL [Concomitant]
     Indication: PROPHYLAXIS
     Dosage: UNK
     Route: 061
  8. ALBUMIN (HUMAN) [Concomitant]
     Indication: ASCITES
     Dosage: 100 ML, TID
     Route: 042
     Dates: start: 20101211
  9. LASIX [Concomitant]
     Indication: OEDEMA PERIPHERAL
     Dosage: DAILY DOSE 20 MG
     Route: 048
  10. ALDACTONE [Concomitant]
     Dosage: DAILY DOSE 25 MG
     Route: 048
     Dates: start: 20101211
  11. LASIX [Concomitant]
     Dosage: DAILY DOSE 40 MG
     Route: 048
     Dates: start: 20101211
  12. GASTER D [Concomitant]
     Indication: GASTRITIS
     Dosage: DAILY DOSE 40 MG
     Route: 048
  13. LENDORMIN [Concomitant]
     Indication: INSOMNIA
     Dosage: DAILY DOSE .25 MG
     Route: 048

REACTIONS (4)
  - HEPATIC FAILURE [None]
  - NAUSEA [None]
  - MALAISE [None]
  - DECREASED APPETITE [None]
